FAERS Safety Report 6575214-5 (Version None)
Quarter: 2010Q1

REPORT INFORMATION
  Report Type: 
  Country: None (occurrence: None)
  Receive Date: 20100209
  Receipt Date: 20100129
  Transmission Date: 20100710
  Serious: Yes (Hospitalization)
  Sender: FDA-Public Use
  Company Number: FR-ELI_LILLY_AND_COMPANY-FR201002000023

PATIENT
  Sex: Male

DRUGS (5)
  1. GEMCITABINE HCL [Suspect]
     Indication: NON-SMALL CELL LUNG CANCER
     Dosage: 1250 MG/M2, UNKNOWN
     Route: 042
     Dates: start: 20090309, end: 20091020
  2. PEMETREXED [Suspect]
     Indication: NON-SMALL CELL LUNG CANCER
     Dosage: 500 MG/M2, UNKNOWN
     Route: 042
     Dates: start: 20091116
  3. CISPLATIN [Suspect]
     Indication: NON-SMALL CELL LUNG CANCER
     Dosage: 80 MG/M2, UNKNOWN
     Route: 042
     Dates: start: 20090309, end: 20090518
  4. SKENAN [Concomitant]
     Dosage: 60 MG, DAILY (1/D)
     Route: 048
  5. ACTISKENAN [Concomitant]
     Route: 048

REACTIONS (4)
  - ANAEMIA [None]
  - FEBRILE NEUTROPENIA [None]
  - PLEURAL EFFUSION [None]
  - THROMBOCYTOPENIA [None]
